FAERS Safety Report 5145346-7 (Version None)
Quarter: 2006Q4

REPORT INFORMATION
  Report Type: 
  Country: None (occurrence: None)
  Receive Date: 20061101
  Receipt Date: 20061017
  Transmission Date: 20070319
  Serious: Yes (Hospitalization)
  Sender: FDA-Public Use
  Company Number: 2006RR-04157

PATIENT
  Age: 65 Year
  Sex: Male

DRUGS (4)
  1. SIMVASTATIN [Suspect]
     Indication: CORONARY ARTERY DISEASE
     Dosage: 10 MG, QD,
     Dates: start: 20000126, end: 20000309
  2. FLUTAMIDE [Suspect]
     Indication: PROSTATE CANCER
     Dosage: 250 MG, BID,
     Dates: start: 19990501, end: 20000227
  3. ISOSORBIDE MONONITRATE [Concomitant]
  4. AMLODIPINE [Concomitant]

REACTIONS (8)
  - CONSTIPATION [None]
  - FATIGUE [None]
  - GALLBLADDER DISORDER [None]
  - HEPATITIS CHOLESTATIC [None]
  - HEPATOMEGALY [None]
  - HEPATOTOXICITY [None]
  - PYREXIA [None]
  - SOMNOLENCE [None]
